FAERS Safety Report 5233783-1 (Version None)
Quarter: 2007Q1

REPORT INFORMATION
  Report Type: 
  Country: None (occurrence: None)
  Receive Date: 20070208
  Receipt Date: 20070201
  Transmission Date: 20070707
  Serious: Yes (Other)
  Sender: FDA-Public Use
  Company Number: US-ROCHE-480875

PATIENT
  Age: 19 Year
  Sex: Male

DRUGS (1)
  1. KLONOPIN [Suspect]
     Indication: ANXIETY
     Route: 065

REACTIONS (2)
  - CONVULSION [None]
  - SUICIDE ATTEMPT [None]
